FAERS Safety Report 24326296 (Version 1)
Quarter: 2024Q3

REPORT INFORMATION
  Report Type: Spontaneous
  Country: ZA (occurrence: None)
  Receive Date: 20240917
  Receipt Date: 20240917
  Transmission Date: 20241017
  Serious: Yes (Hospitalization)
  Sender: ASTRAZENECA
  Company Number: 2024A209055

PATIENT
  Age: 81 Year
  Sex: Female

DRUGS (7)
  1. DAPAGLIFLOZIN [Suspect]
     Active Substance: DAPAGLIFLOZIN
     Indication: Type 2 diabetes mellitus
     Dosage: 10.0MG UNKNOWN
     Route: 048
  2. PANTOCID [Concomitant]
     Indication: Ulcer
     Route: 048
  3. PANTOCID [Concomitant]
     Indication: Dyspepsia
     Route: 048
  4. PANTOCID [Concomitant]
     Indication: Gastrinoma
     Route: 048
  5. PANTOCID [Concomitant]
     Indication: Helicobacter gastritis
     Route: 048
  6. ASPIRIN [Concomitant]
     Active Substance: ASPIRIN
     Indication: Anticoagulant therapy
     Route: 048
  7. LIPOGEN [Concomitant]
     Indication: Blood cholesterol
     Route: 048

REACTIONS (1)
  - Cardiac disorder [Unknown]
